FAERS Safety Report 8715199 (Version 2)
Quarter: 2012Q4

REPORT INFORMATION
  Report Type: 
  Country: US (occurrence: US)
  Receive Date: 20120809
  Receipt Date: 20120913
  Transmission Date: 20130627
  Serious: Yes (Other)
  Sender: FDA-Public Use
  Company Number: US-PFIZER INC-2012191824

PATIENT
  Age: 56 Year
  Sex: Female
  Weight: 50.57 kg

DRUGS (22)
  1. CHANTIX [Suspect]
     Indication: SMOKING CESSATION THERAPY
     Dosage: 0.5 mg, 1x/day
     Route: 048
     Dates: start: 201203, end: 2012
  2. CHANTIX [Suspect]
     Dosage: 1 mg, 2x/day (reported as one by mouth twice a day)
     Route: 048
     Dates: start: 20120606
  3. PROTONIX [Concomitant]
     Indication: GASTROOESOPHAGEAL REFLUX DISEASE
     Dosage: 40 mg, 1x/day
     Route: 048
     Dates: start: 2010
  4. LISINOPRIL [Concomitant]
     Dosage: 5 mg, 1x/day
     Route: 048
  5. SOMA [Concomitant]
     Dosage: 350 mg, 4x/day
     Route: 048
     Dates: start: 20120217
  6. CLONAZEPAM [Concomitant]
     Dosage: 1 mg, 2x/day
     Route: 048
  7. MIRALAX [Concomitant]
     Dosage: 16 cc, at bedtime
  8. SUCRALFATE [Concomitant]
     Dosage: 1 g, one before meals and at bedtime
  9. CYMBALTA [Concomitant]
     Dosage: 60 mg, 2x/day
     Route: 048
  10. PROMETHAZINE HCL [Concomitant]
     Dosage: 25 mg, as needed (every 8 hrs)
  11. SYMBICORT [Concomitant]
     Dosage: 80-4.5 mcg/act aero, 2x/day (2 puffs by mouth)
     Route: 048
  12. ASPIRIN ADULT LOW STRENGTH [Concomitant]
     Dosage: 81 mg, 1x/day
     Route: 048
     Dates: start: 20110714
  13. NASONEX [Concomitant]
     Dosage: 50 mcg/act, 1x/day (2 sprays each nostril)
     Dates: start: 20110923
  14. PATANOL 0.1 % SOL [Concomitant]
     Dosage: 1 drop ou, bid, prn
     Dates: start: 20110929
  15. PERCOCET [Concomitant]
     Dosage: 7.5-325 mg 1-2 every 4 hours up to eight daily
     Dates: start: 20111201
  16. IMITREX [Concomitant]
     Indication: HEADACHE
     Dosage: 100 mg at start, may repeat once in 2 hours and total of 2 in 24 hours
     Dates: start: 20111201
  17. TOPAMAX [Concomitant]
     Dosage: 100 mg, 2x/day
     Route: 048
     Dates: start: 20111219
  18. FOSAMAX [Concomitant]
     Dosage: 70 mg, weekly
     Route: 048
     Dates: start: 20120131
  19. ACYCLOVIR [Concomitant]
     Dosage: 800 mg five times daily
     Route: 048
     Dates: start: 20120201
  20. LYRICA [Concomitant]
     Dosage: 25 mg, 1x/day
     Route: 048
     Dates: start: 20120305
  21. SINGULAIR [Concomitant]
     Dosage: 10 mg, 1x/day
     Route: 048
     Dates: start: 20120523
  22. NYSTATIN [Concomitant]
     Dosage: 100000 unit/gram, 4x/day (prn, apply to AA)
     Dates: start: 20120905

REACTIONS (17)
  - Limb injury [Unknown]
  - Pain in extremity [Unknown]
  - Arthralgia [Unknown]
  - Oxygen saturation abnormal [Unknown]
  - Lacrimation increased [Unknown]
  - Sinus disorder [Unknown]
  - Oral fungal infection [Unknown]
  - Lip pain [Unknown]
  - Lip exfoliation [Unknown]
  - Oral pain [Unknown]
  - Oral mucosal exfoliation [Unknown]
  - Back disorder [Unknown]
  - Headache [Unknown]
  - Tongue dry [Unknown]
  - Oropharyngeal plaque [Unknown]
  - Skin lesion [Unknown]
  - Cheilitis [Unknown]
